FAERS Safety Report 4761546-X (Version None)
Quarter: 2005Q3

REPORT INFORMATION
  Report Type: 
  Country: None (occurrence: None)
  Receive Date: 20050906
  Receipt Date: 20050803
  Transmission Date: 20060218
  Serious: Yes (Life-Threatening, Hospitalization)
  Sender: FDA-Public Use
  Company Number: US-AMGEN-US145528

PATIENT
  Sex: Male

DRUGS (4)
  1. ENBREL [Suspect]
     Indication: PSORIASIS
     Route: 058
     Dates: start: 20031120
  2. UNSPECIFIED MEDICATION [Concomitant]
  3. EZETIMIBE [Concomitant]
  4. SIMVASTATIN [Concomitant]

REACTIONS (6)
  - BLISTER [None]
  - CHILLS [None]
  - ERYTHRODERMIC PSORIASIS [None]
  - OEDEMA PERIPHERAL [None]
  - PYREXIA [None]
  - STOMACH DISCOMFORT [None]
